FAERS Safety Report 12012442 (Version 7)
Quarter: 2018Q1

REPORT INFORMATION
  Report Type: Spontaneous
  Country: US (occurrence: US)
  Receive Date: 20160205
  Receipt Date: 20180315
  Transmission Date: 20180508
  Serious: Yes (Hospitalization, Other)
  Sender: FDA-Public Use
  Company Number: US-ELI_LILLY_AND_COMPANY-US201602001031

PATIENT
  Age: 58 Year
  Sex: Male
  Weight: 81.63 kg

DRUGS (4)
  1. AXIRON [Suspect]
     Active Substance: TESTOSTERONE
     Indication: BLOOD TESTOSTERONE DECREASED
     Dosage: UNK, UNKNOWN
     Route: 065
     Dates: start: 20101130, end: 20111229
  2. ANDROGEL [Suspect]
     Active Substance: TESTOSTERONE
     Indication: PRODUCT USED FOR UNKNOWN INDICATION
     Dosage: UNK, UNKNOWN
     Route: 065
     Dates: start: 20111229, end: 20141030
  3. AXIRON [Suspect]
     Active Substance: TESTOSTERONE
     Dosage: ONE PUMP TO EACH ARMPIT, EACH MORNING
     Route: 061
     Dates: start: 201409, end: 201412
  4. DOXYCYCLIN                         /00055701/ [Concomitant]
     Active Substance: DOXYCYCLINE
     Route: 065

REACTIONS (1)
  - Lateral medullary syndrome [Not Recovered/Not Resolved]

NARRATIVE: CASE EVENT DATE: 20141216
